FAERS Safety Report 16782365 (Version 1)
Quarter: 2019Q3

REPORT INFORMATION
  Report Type: Report from Study
  Country: US (occurrence: US)
  Receive Date: 20190906
  Receipt Date: 20190906
  Transmission Date: 20191005
  Serious: Yes (Other)
  Sender: FDA-Public Use
  Company Number: US-GILEAD-2019-0424534

PATIENT
  Age: 81 Year
  Sex: Male

DRUGS (1)
  1. AMBRISENTAN [Suspect]
     Active Substance: AMBRISENTAN
     Indication: PRODUCT USED FOR UNKNOWN INDICATION
     Dosage: 5 MG, UNKNOWN FREQUENCY
     Route: 065
     Dates: start: 20190730

REACTIONS (4)
  - Peripheral swelling [Unknown]
  - Drug hypersensitivity [Unknown]
  - Swelling face [Unknown]
  - Swelling [Unknown]
